FAERS Safety Report 7710538-7 (Version None)
Quarter: 2011Q3

REPORT INFORMATION
  Report Type: 
  Country: None (occurrence: None)
  Receive Date: 20110818
  Receipt Date: 20110816
  Transmission Date: 20111222
  Serious: Yes (Other)
  Sender: FDA-Public Use
  Company Number: 2011029545

PATIENT
  Age: 8 Year

DRUGS (2)
  1. HIZENTRA [Suspect]
     Dosage: 25 ML 1X/WEEK SUBCUTANEOUS
     Route: 058
     Dates: start: 20110801
  2. HIZENTRA [Suspect]
     Dosage: 25 ML 1X/WEEK SUBCUTANEOUS
     Route: 058
     Dates: start: 20110501

REACTIONS (2)
  - HEADACHE [None]
  - DIPLOPIA [None]
